FAERS Safety Report 7137106-2 (Version None)
Quarter: 2010Q4

REPORT INFORMATION
  Report Type: 
  Country: None (occurrence: None)
  Receive Date: 20101206
  Receipt Date: 20101005
  Transmission Date: 20110411
  Serious: No
  Sender: FDA-Public Use
  Company Number: JP-JNJFOC-20101201167

PATIENT
  Sex: Female
  Weight: 61 kg

DRUGS (36)
  1. DUROTEP MT PATCH [Suspect]
     Indication: PAIN
     Route: 062
  2. DUROTEP MT PATCH [Suspect]
     Route: 062
  3. DUROTEP MT PATCH [Suspect]
     Route: 062
  4. DUROTEP MT PATCH [Suspect]
     Route: 062
  5. LANSOPRAZOLE [Concomitant]
     Route: 048
  6. DAI KENCHU TO [Concomitant]
     Route: 048
  7. LENDORMIN D [Concomitant]
     Route: 048
  8. MAGLAX [Concomitant]
     Route: 048
  9. LAXOBERON [Concomitant]
     Route: 048
  10. HYPEN [Concomitant]
     Indication: PAIN
     Route: 048
  11. PURSENNID [Concomitant]
     Route: 048
  12. RIMATIL [Concomitant]
     Route: 048
  13. BENZALIN [Concomitant]
     Route: 048
  14. MUCOSTA [Concomitant]
     Route: 048
  15. PREDNISOLONE [Concomitant]
     Route: 048
  16. KELNAC [Concomitant]
     Route: 048
  17. AMLODIN OD [Concomitant]
     Route: 048
  18. FLURBIPROFEN [Concomitant]
     Indication: PAIN
     Route: 065
  19. NEUROTROPIN [Concomitant]
     Indication: PAIN
     Route: 065
  20. ADALAT [Concomitant]
     Route: 048
  21. LASIX [Concomitant]
     Route: 048
  22. VOLTAREN [Concomitant]
     Indication: PAIN
     Route: 054
  23. POSTERISAN [Concomitant]
     Route: 065
  24. BUSCOPAN [Concomitant]
     Indication: PAIN
     Route: 048
  25. CELECOXIB [Concomitant]
     Route: 048
  26. DORAL [Concomitant]
     Route: 048
  27. MOHRUS TAPE [Concomitant]
     Indication: PAIN
     Route: 062
  28. CALONAL [Concomitant]
     Indication: PAIN
     Route: 048
  29. MYSLEE [Concomitant]
     Route: 048
  30. LOXONIN [Concomitant]
     Indication: PAIN
     Route: 062
  31. LOXONIN [Concomitant]
     Route: 062
  32. TEGRETOL [Concomitant]
     Indication: PAIN
     Route: 048
  33. TEGRETOL [Concomitant]
     Route: 048
  34. TEGRETOL [Concomitant]
     Route: 048
  35. NEUROTROPIN [Concomitant]
     Route: 048
  36. ACONINSUN [Concomitant]
     Indication: PAIN
     Route: 048

REACTIONS (1)
  - DRUG PRESCRIBING ERROR [None]
